FAERS Safety Report 21739727 (Version 2)
Quarter: 2023Q1

REPORT INFORMATION
  Report Type: Spontaneous
  Country: US (occurrence: US)
  Receive Date: 20221216
  Receipt Date: 20230120
  Transmission Date: 20230417
  Serious: No
  Sender: FDA-Public Use
  Company Number: US-SA-SAC20221215000203

PATIENT
  Age: 41 Year
  Sex: Female

DRUGS (10)
  1. DUPIXENT [Suspect]
     Active Substance: DUPILUMAB
     Indication: Eosinophilic oesophagitis
     Dosage: 300 MG, QW
     Route: 058
     Dates: start: 20221123, end: 20230112
  2. BOTOX [Concomitant]
     Active Substance: ONABOTULINUMTOXINA
  3. LANSOPRAZOLE [Concomitant]
     Active Substance: LANSOPRAZOLE
  4. BESEROL [CHLORMEZANONE;PARACETAMOL] [Concomitant]
  5. GABAPENTIN [Concomitant]
     Active Substance: GABAPENTIN
  6. ALBUTEROL [Concomitant]
     Active Substance: ALBUTEROL
  7. BUDESONIDE [Concomitant]
     Active Substance: BUDESONIDE
  8. ZOLMITRIPTAN [Concomitant]
     Active Substance: ZOLMITRIPTAN
  9. RIZATRIPTAN [Concomitant]
     Active Substance: RIZATRIPTAN
  10. METHOCARBAMOL [Concomitant]
     Active Substance: METHOCARBAMOL
     Dosage: UNK

REACTIONS (5)
  - Nasal congestion [Unknown]
  - Swelling of eyelid [Unknown]
  - Eye pruritus [Unknown]
  - Dry eye [Unknown]
  - Injection site reaction [Unknown]

NARRATIVE: CASE EVENT DATE: 20221124
